FAERS Safety Report 7289344-6 (Version None)
Quarter: 2011Q1

REPORT INFORMATION
  Report Type: 
  Country: None (occurrence: None)
  Receive Date: 20110211
  Receipt Date: 20110207
  Transmission Date: 20110831
  Serious: Yes (Other)
  Sender: FDA-Public Use
  Company Number: FI-ROXANE LABORATORIES, INC.-2011-RO-00150RO

PATIENT
  Age: 10 Month
  Sex: Female

DRUGS (2)
  1. LEVETIRACETAM [Suspect]
     Indication: BREATH HOLDING
  2. PROPRANOLOL [Suspect]
     Indication: BREATH HOLDING

REACTIONS (4)
  - PSYCHOMOTOR HYPERACTIVITY [None]
  - AGGRESSION [None]
  - DECREASED APPETITE [None]
  - DRUG INEFFECTIVE [None]
